FAERS Safety Report 15339504 (Version 1)
Quarter: 2018Q3

REPORT INFORMATION
  Report Type: Spontaneous
  Country: US (occurrence: US)
  Receive Date: 20180827
  Receipt Date: 20180827
  Transmission Date: 20181010
  Serious: No
  Sender: FDA-Public Use
  Company Number: None

PATIENT
  Age: 32 Year
  Sex: Female

DRUGS (1)
  1. HARVONI [Suspect]
     Active Substance: LEDIPASVIR\SOFOSBUVIR
     Indication: CHRONIC HEPATITIS C
     Dosage: 90MG/400MG ONCE DAILY BY MOUTH
     Route: 048
     Dates: start: 20180207

REACTIONS (10)
  - Anger [None]
  - Nausea [None]
  - Vomiting [None]
  - Muscle spasms [None]
  - Insomnia [None]
  - Mania [None]
  - Headache [None]
  - Feeling abnormal [None]
  - Anxiety [None]
  - Weight decreased [None]

NARRATIVE: CASE EVENT DATE: 20180707
